FAERS Safety Report 21948374 (Version 1)
Quarter: 2023Q1

REPORT INFORMATION
  Report Type: Other
  Country: None (occurrence: AU)
  Receive Date: 20230203
  Receipt Date: 20230203
  Transmission Date: 20230418
  Serious: Yes (Life-Threatening, Hospitalization, Other)
  Sender: FDA-Public Use
  Company Number: AU-ASPIRO PHARMA LTD-2137452

PATIENT
  Sex: Female
  Weight: 3.155 kg

DRUGS (1)
  1. LIDOCAINE HYDROCHLORIDE [Suspect]
     Active Substance: LIDOCAINE HYDROCHLORIDE
     Indication: Foetal exposure during pregnancy
     Route: 064

REACTIONS (8)
  - Malaise [Recovered/Resolved]
  - Apnoea [Recovered/Resolved]
  - Pallor [Recovered/Resolved]
  - Floppy infant [Recovered/Resolved]
  - Oxygen saturation decreased [Recovered/Resolved]
  - Tonic convulsion [Recovered/Resolved]
  - Neonatal toxicity [Recovered/Resolved]
  - Foetal exposure during delivery [Unknown]
